FAERS Safety Report 25122754 (Version 1)
Quarter: 2025Q1

REPORT INFORMATION
  Report Type: Spontaneous
  Country: GB (occurrence: GB)
  Receive Date: 20250326
  Receipt Date: 20250326
  Transmission Date: 20250409
  Serious: Yes (Hospitalization)
  Sender: MYLAN
  Company Number: GB-MYLANLABS-2025M1024927

PATIENT
  Sex: Female

DRUGS (1)
  1. CLOZARIL [Suspect]
     Active Substance: CLOZAPINE
     Indication: Schizophrenia
     Dosage: UNK, BID (SPLIT DOSE OF 25 MG PO IN THE MORNING AND 100 MG PO AT NIGHT)
     Dates: start: 20090226, end: 20250228

REACTIONS (1)
  - General physical health deterioration [Unknown]
